FAERS Safety Report 8134369-1 (Version None)
Quarter: 2012Q1

REPORT INFORMATION
  Report Type: 
  Country: None (occurrence: None)
  Receive Date: 20120209
  Receipt Date: 20120131
  Transmission Date: 20120608
  Serious: Yes (Other)
  Sender: FDA-Public Use
  Company Number: 1000027587

PATIENT
  Sex: Male

DRUGS (2)
  1. TEFLARO [Suspect]
  2. TEFLARO [Suspect]

REACTIONS (2)
  - TACHYCARDIA [None]
  - RASH [None]
